FAERS Safety Report 13376388 (Version 1)
Quarter: 2017Q1

REPORT INFORMATION
  Report Type: Spontaneous
  Country: US (occurrence: US)
  Receive Date: 20170328
  Receipt Date: 20170328
  Transmission Date: 20170429
  Serious: Yes (Other)
  Sender: FDA-Public Use
  Company Number: US-ROCHE-1909810

PATIENT
  Sex: Female

DRUGS (17)
  1. PERJETA [Suspect]
     Active Substance: PERTUZUMAB
     Indication: BREAST CANCER
     Dosage: 420MG IN NS (250ML) CHEMO INFUSION
     Route: 042
  2. FASLODEX [Concomitant]
     Active Substance: FULVESTRANT
  3. REGLAN [Concomitant]
     Active Substance: METOCLOPRAMIDE HYDROCHLORIDE
     Route: 048
  4. TAXOL [Concomitant]
     Active Substance: PACLITAXEL
     Dosage: RECEIVED 4 TO 6 CYCLES
     Route: 065
     Dates: end: 2013
  5. ZOFRAN [Concomitant]
     Active Substance: ONDANSETRON HYDROCHLORIDE
     Route: 065
  6. HERCEPTIN [Suspect]
     Active Substance: TRASTUZUMAB
     Indication: BREAST CANCER
     Dosage: 354MG IN NS (250ML) CHEMO INFUSION
     Route: 042
  7. XGEVA [Suspect]
     Active Substance: DENOSUMAB
     Indication: PRODUCT USED FOR UNKNOWN INDICATION
     Route: 058
     Dates: start: 20170117
  8. LEVSIN [Concomitant]
     Active Substance: HYOSCYAMINE SULFATE
     Indication: MUSCLE SPASMS
     Route: 048
  9. XELODA [Suspect]
     Active Substance: CAPECITABINE
     Indication: BREAST CANCER
     Dosage: 1000MG BID, 1 WEEK ON 1 WEEK OFF
     Route: 048
  10. EMLA [Concomitant]
     Active Substance: LIDOCAINE\PRILOCAINE
     Route: 065
  11. BEPREVE [Concomitant]
     Active Substance: BEPOTASTINE BESILATE
     Dosage: RIGHT EYE
     Route: 047
  12. BACTRIM DS [Suspect]
     Active Substance: SULFAMETHOXAZOLE\TRIMETHOPRIM
     Indication: PRODUCT USED FOR UNKNOWN INDICATION
     Route: 065
  13. IMODIUM [Concomitant]
     Active Substance: LOPERAMIDE HYDROCHLORIDE
     Dosage: AS NEEDED
     Route: 048
  14. CLARITIN (UNITED STATES) [Concomitant]
     Route: 048
  15. XGEVA [Suspect]
     Active Substance: DENOSUMAB
     Route: 058
     Dates: start: 20170214
  16. XGEVA [Suspect]
     Active Substance: DENOSUMAB
     Route: 058
     Dates: start: 20160802
  17. NORMAL SALINE [Concomitant]
     Active Substance: SODIUM CHLORIDE

REACTIONS (13)
  - Breast cancer metastatic [Unknown]
  - Hypotension [Not Recovered/Not Resolved]
  - Anxiety [Unknown]
  - Stomatitis [Unknown]
  - Presyncope [Unknown]
  - Hypoglycaemia [Unknown]
  - Abdominal distension [Unknown]
  - Bacterial infection [Unknown]
  - Fatigue [Not Recovered/Not Resolved]
  - Onychoclasis [Unknown]
  - Diarrhoea [Unknown]
  - Weight decreased [Unknown]
  - Small intestine adenocarcinoma [Unknown]
